FAERS Safety Report 4479968-3 (Version None)
Quarter: 2004Q4

REPORT INFORMATION
  Report Type: 
  Country: None (occurrence: None)
  Receive Date: 20041018
  Receipt Date: 20040830
  Transmission Date: 20050328
  Serious: Yes (Hospitalization)
  Sender: FDA-Public Use
  Company Number: M2004-1514

PATIENT
  Age: 26 Year
  Sex: Female

DRUGS (4)
  1. LOPERAMIDE HCL [Suspect]
     Indication: GASTROENTERITIS
  2. METOCLOPRAMIDE [Suspect]
     Indication: GASTROENTERITIS
     Dosage: 3 TABLETS, ORAL
     Route: 048
     Dates: start: 20040827, end: 20040829
  3. NOROXIN [Concomitant]
  4. ACETAMINOPHEN [Concomitant]

REACTIONS (1)
  - DYSTONIA [None]
